FAERS Safety Report 19587314 (Version 1)
Quarter: 2021Q3

REPORT INFORMATION
  Report Type: Spontaneous
  Country: EG (occurrence: EG)
  Receive Date: 20210721
  Receipt Date: 20210721
  Transmission Date: 20211014
  Serious: Yes (Death, Hospitalization, Other)
  Sender: FDA-Public Use
  Company Number: EG-LUPIN PHARMACEUTICALS INC.-2021-12431

PATIENT
  Age: 12 Year
  Sex: Female

DRUGS (11)
  1. VANCOMYCIN [Concomitant]
     Active Substance: VANCOMYCIN
     Indication: CELLULITIS
     Dosage: UNK
     Route: 065
  2. HYDROXYCHLOROQUINE [Suspect]
     Active Substance: HYDROXYCHLOROQUINE
     Indication: LUPUS NEPHRITIS
     Dosage: 6 MILLIGRAM/KILOGRAM, QD
     Route: 065
  3. MYCOPHENOLATE MOFETIL. [Suspect]
     Active Substance: MYCOPHENOLATE MOFETIL
     Indication: SYSTEMIC LUPUS ERYTHEMATOSUS
     Dosage: UNK
     Route: 065
  4. CEFEPIME [Concomitant]
     Active Substance: CEFEPIME HYDROCHLORIDE
     Indication: SKIN BACTERIAL INFECTION
     Dosage: UNK
     Route: 065
  5. AMPHOTERICIN?B [Suspect]
     Active Substance: AMPHOTERICIN B
     Indication: DISSEMINATED CRYPTOCOCCOSIS
     Dosage: 0.7 MILLIGRAM/KILOGRAM, QD (INFUSION TIME OF 6 HOURS)
     Route: 065
  6. FLUCONAZOLE. [Concomitant]
     Active Substance: FLUCONAZOLE
     Indication: PRODUCT USED FOR UNKNOWN INDICATION
     Dosage: UNK
     Route: 065
  7. PREDNISONE. [Suspect]
     Active Substance: PREDNISONE
     Dosage: 30 MILLIGRAM, QD
     Route: 065
  8. VANCOMYCIN [Concomitant]
     Active Substance: VANCOMYCIN
     Indication: SKIN LESION
  9. PREDNISONE. [Suspect]
     Active Substance: PREDNISONE
     Indication: LUPUS NEPHRITIS
     Dosage: 40 MILLIGRAM, QD
     Route: 065
  10. CYCLOPHOSPHAMIDE. [Suspect]
     Active Substance: CYCLOPHOSPHAMIDE
     Indication: SYSTEMIC LUPUS ERYTHEMATOSUS
     Dosage: UNK
     Route: 065
  11. AMIKACIN. [Concomitant]
     Active Substance: AMIKACIN
     Indication: SKIN BACTERIAL INFECTION
     Dosage: UNK
     Route: 065

REACTIONS (4)
  - Atrophy [Fatal]
  - Optic atrophy [Fatal]
  - Meningitis cryptococcal [Fatal]
  - Disseminated cryptococcosis [Fatal]
